FAERS Safety Report 25916045 (Version 1)
Quarter: 2025Q4

REPORT INFORMATION
  Report Type: Spontaneous
  Country: CA (occurrence: CA)
  Receive Date: 20251013
  Receipt Date: 20251013
  Transmission Date: 20260118
  Serious: Yes (Other)
  Sender: CELLTRION
  Company Number: CA-CELLTRION INC.-2025CA036417

PATIENT

DRUGS (14)
  1. INFLIXIMAB [Suspect]
     Active Substance: INFLIXIMAB
     Indication: Crohn^s disease
     Dosage: 1200 MILLIGRAM
     Route: 042
  2. INFLIXIMAB [Suspect]
     Active Substance: INFLIXIMAB
     Dosage: 600 MILLIGRAM
     Route: 042
  3. INFLIXIMAB [Suspect]
     Active Substance: INFLIXIMAB
     Dosage: 1200 MILLIGRAM
     Route: 042
  4. INFLIXIMAB [Suspect]
     Active Substance: INFLIXIMAB
     Dosage: 1200 MILLIGRAM
     Route: 042
  5. INFLIXIMAB [Suspect]
     Active Substance: INFLIXIMAB
     Dosage: 1200 MILLIGRAM
     Route: 042
  6. INFLIXIMAB [Suspect]
     Active Substance: INFLIXIMAB
     Dosage: 1200 MILLIGRAM
     Route: 042
  7. INFLIXIMAB [Suspect]
     Active Substance: INFLIXIMAB
     Dosage: 600 MILLIGRAM
     Route: 042
  8. CIPRO [Concomitant]
     Active Substance: CIPROFLOXACIN HYDROCHLORIDE
     Dosage: 500 MILLIGRAM, 2 EVERY 1 DAYS
  9. DOXYCYCLINE [Concomitant]
     Active Substance: DOXYCYCLINE
     Dosage: 100 MILLIGRAM, 2 EVERY 1 DAY
  10. FLURBIPROFEN [Concomitant]
     Active Substance: FLURBIPROFEN
     Dosage: 50 MILLIGRAM, 2 EVERY 1 DAY
  11. FOLIC ACID [Concomitant]
     Active Substance: FOLIC ACID
     Dosage: 5 MILLIGRAM, 1 EVERY 1 DAYS
  12. HYDROMORPHONE [Concomitant]
     Active Substance: HYDROMORPHONE
     Dosage: 1 MILLIGRAM, 1 EVERY 1 DAYS
  13. METHOTREXATE [Concomitant]
     Active Substance: METHOTREXATE
     Indication: Crohn^s disease
     Dosage: 15 MILLIGRAM, 1 EVERY 1 WEEKS
     Route: 058
  14. METRONIDAZOLE [Concomitant]
     Active Substance: METRONIDAZOLE
     Dosage: 250 MILLIGRAM, 2 EVERY 1 DAYS

REACTIONS (7)
  - Condition aggravated [Not Recovered/Not Resolved]
  - Weight increased [Not Recovered/Not Resolved]
  - Uveitis [Not Recovered/Not Resolved]
  - Arthralgia [Not Recovered/Not Resolved]
  - Off label use [Not Recovered/Not Resolved]
  - Underdose [Unknown]
  - Overdose [Unknown]
